FAERS Safety Report 24898205 (Version 1)
Quarter: 2025Q1

REPORT INFORMATION
  Report Type: Spontaneous
  Country: US (occurrence: US)
  Receive Date: 20250129
  Receipt Date: 20250129
  Transmission Date: 20250409
  Serious: No
  Sender: SANDOZ
  Company Number: US-SANDOZ-SDZ2025US005328

PATIENT
  Sex: Female

DRUGS (8)
  1. AZITHROMYCIN [Suspect]
     Active Substance: AZITHROMYCIN
     Indication: Obliterative bronchiolitis
     Route: 065
  2. AZITHROMYCIN [Suspect]
     Active Substance: AZITHROMYCIN
     Indication: Mycobacterium avium complex infection
  3. AMIKACIN [Suspect]
     Active Substance: AMIKACIN
     Indication: Obliterative bronchiolitis
     Route: 042
  4. AMIKACIN [Suspect]
     Active Substance: AMIKACIN
     Indication: Mycobacterium avium complex infection
  5. ETHAMBUTOL [Suspect]
     Active Substance: ETHAMBUTOL HYDROCHLORIDE
     Indication: Obliterative bronchiolitis
     Route: 065
  6. ETHAMBUTOL [Suspect]
     Active Substance: ETHAMBUTOL HYDROCHLORIDE
     Indication: Mycobacterium avium complex infection
  7. RIFAMPIN [Suspect]
     Active Substance: RIFAMPIN
     Indication: Obliterative bronchiolitis
     Route: 065
  8. RIFAMPIN [Suspect]
     Active Substance: RIFAMPIN
     Indication: Mycobacterium avium complex infection

REACTIONS (2)
  - Lung disorder [Unknown]
  - Drug ineffective [Unknown]
